FAERS Safety Report 7706653-4 (Version None)
Quarter: 2011Q3

REPORT INFORMATION
  Report Type: 
  Country: None (occurrence: None)
  Receive Date: 20110824
  Receipt Date: 20110817
  Transmission Date: 20111222
  Serious: Yes (Death, Other)
  Sender: FDA-Public Use
  Company Number: US-JNJFOC-20110103783

PATIENT
  Sex: Female
  Weight: 52.16 kg

DRUGS (8)
  1. MIRTAZAPINE [Concomitant]
     Route: 065
  2. NICOTINE [Concomitant]
     Route: 065
  3. CAFFEINE [Concomitant]
     Route: 065
  4. ALPRAZOLAM [Concomitant]
     Route: 065
  5. DIPHENHYDRAMINE HCL [Concomitant]
     Route: 065
  6. DURAGESIC-100 [Suspect]
     Indication: PAIN
     Route: 062
  7. QUETIAPINE [Concomitant]
     Route: 065
  8. LAMOTRIGINE [Concomitant]
     Route: 065

REACTIONS (2)
  - TOXICITY TO VARIOUS AGENTS [None]
  - WRONG TECHNIQUE IN DRUG USAGE PROCESS [None]
